FAERS Safety Report 7768175-4 (Version None)
Quarter: 2011Q3

REPORT INFORMATION
  Report Type: 
  Country: None (occurrence: None)
  Receive Date: 20110922
  Receipt Date: 20110922
  Transmission Date: 20111222
  Serious: Yes (Other)
  Sender: FDA-Public Use
  Company Number: None

PATIENT
  Age: 33 Year
  Sex: Female
  Weight: 68.038 kg

DRUGS (1)
  1. NORELGESTROMIN/ETHINYL ESTRADIOL [Suspect]
     Indication: PELVIC PAIN
     Dosage: 6.0 MG
     Route: 062
     Dates: start: 20110731, end: 20110902

REACTIONS (9)
  - NAUSEA [None]
  - APPLICATION SITE HAEMATOMA [None]
  - MUSCLE SPASMS [None]
  - APPLICATION SITE PAIN [None]
  - APPLICATION SITE BURN [None]
  - BACK PAIN [None]
  - PAIN [None]
  - METRORRHAGIA [None]
  - HEADACHE [None]
